FAERS Safety Report 8912280 (Version 2)
Quarter: 2012Q4

REPORT INFORMATION
  Report Type: 
  Country: PL (occurrence: IT)
  Receive Date: 20121115
  Receipt Date: 20121205
  Transmission Date: 20130627
  Serious: Yes (Other)
  Sender: FDA-Public Use
  Company Number: PL-PFIZER INC-2012283983

PATIENT
  Age: 41 Year
  Sex: Female

DRUGS (4)
  1. LIDOCAINE HCL [Suspect]
     Indication: CELLULITE
     Route: 058
  2. THEOPHYLLINE [Suspect]
     Indication: CELLULITE
     Route: 058
  3. AESCULUS HIPPOCASTANUM BARK [Suspect]
     Indication: CELLULITE
     Route: 058
  4. NORMAL SALINE [Suspect]
     Indication: CELLULITE
     Route: 058

REACTIONS (1)
  - Mycobacterium fortuitum infection [Unknown]
